FAERS Safety Report 11434793 (Version 1)
Quarter: 2015Q3

REPORT INFORMATION
  Report Type: Spontaneous
  Country: US (occurrence: US)
  Receive Date: 20150831
  Receipt Date: 20150831
  Transmission Date: 20151125
  Serious: No
  Sender: FDA-Public Use
  Company Number: US-ENDO PHARMACEUTICALS INC.-BUTA20140015

PATIENT
  Age: 53 Year
  Sex: Female

DRUGS (1)
  1. BUTALBITAL, ACETAMINOPHEN, AND CAFFEINE [Suspect]
     Active Substance: ACETAMINOPHEN\BUTALBITAL\CAFFEINE
     Indication: HEADACHE
     Dosage: UNKNOWN
     Route: 048
     Dates: end: 2014

REACTIONS (4)
  - Condition aggravated [Unknown]
  - Hypoaesthesia [Unknown]
  - Drug ineffective [Unknown]
  - Aneurysm [Unknown]

NARRATIVE: CASE EVENT DATE: 2006
